FAERS Safety Report 8533954-2 (Version None)
Quarter: 2012Q3

REPORT INFORMATION
  Report Type: 
  Country: None (occurrence: None)
  Receive Date: 20120724
  Receipt Date: 20120716
  Transmission Date: 20120928
  Serious: Yes (Hospitalization, Other)
  Sender: FDA-Public Use
  Company Number: US-ASTRAZENECA-2012SE49160

PATIENT
  Sex: Female

DRUGS (3)
  1. LOT OF DRUGS [Concomitant]
     Indication: DEPRESSION
  2. SEROQUEL [Suspect]
     Indication: BIPOLAR I DISORDER
     Route: 048
  3. SEROQUEL [Suspect]
     Route: 048

REACTIONS (5)
  - ABNORMAL DREAMS [None]
  - RESTLESS LEGS SYNDROME [None]
  - SUICIDAL BEHAVIOUR [None]
  - MOOD SWINGS [None]
  - NERVOUS SYSTEM DISORDER [None]
